FAERS Safety Report 20589211 (Version 1)
Quarter: 2022Q1

REPORT INFORMATION
  Report Type: Report from Study
  Country: US (occurrence: US)
  Receive Date: 20220314
  Receipt Date: 20220314
  Transmission Date: 20220423
  Serious: Yes (Other)
  Sender: FDA-Public Use
  Company Number: US-JNJFOC-20220315583

PATIENT
  Age: 71 Year
  Sex: Male
  Weight: 104.42 kg

DRUGS (4)
  1. RIVAROXABAN [Suspect]
     Active Substance: RIVAROXABAN
     Indication: Thrombosis prophylaxis
     Dosage: 10 MG, QD
     Route: 048
     Dates: start: 20211118, end: 20211216
  2. RIVAROXABAN [Suspect]
     Active Substance: RIVAROXABAN
     Indication: Knee operation
     Dosage: UNK
  3. BAYER LOW DOSE [Suspect]
     Active Substance: ASPIRIN
     Dosage: 81 MG, BID
     Route: 065
  4. PEPCID [Concomitant]
     Active Substance: FAMOTIDINE

REACTIONS (5)
  - Haemorrhage [Recovering/Resolving]
  - Contusion [Unknown]
  - Scar [Unknown]
  - Joint swelling [Unknown]
  - Arthralgia [Unknown]

NARRATIVE: CASE EVENT DATE: 20211201
